FAERS Safety Report 12760562 (Version 1)
Quarter: 2016Q3

REPORT INFORMATION
  Report Type: Report from Study
  Country: DE (occurrence: DE)
  Receive Date: 20160919
  Receipt Date: 20160919
  Transmission Date: 20161109
  Serious: Yes (Hospitalization)
  Sender: FDA-Public Use
  Company Number: US-ASTRAZENECA-2016SE99604

PATIENT
  Age: 176 Day
  Sex: Male
  Weight: .9 kg

DRUGS (5)
  1. SYNAGIS [Suspect]
     Active Substance: PALIVIZUMAB
     Indication: PREMATURE BABY
     Dosage: 40 MG
     Route: 030
     Dates: start: 20091110, end: 20091110
  2. SYNAGIS [Suspect]
     Active Substance: PALIVIZUMAB
     Indication: PREMATURE BABY
     Dosage: 40 MG
     Route: 030
     Dates: start: 20091202, end: 20091202
  3. SYNAGIS [Suspect]
     Active Substance: PALIVIZUMAB
     Indication: PREMATURE BABY
     Dosage: 40 MG
     Route: 030
     Dates: start: 20091223, end: 20091223
  4. SYNAGIS [Suspect]
     Active Substance: PALIVIZUMAB
     Indication: PREMATURE BABY
     Dosage: 40 MG
     Route: 030
     Dates: start: 20100420, end: 20100420
  5. SYNAGIS [Suspect]
     Active Substance: PALIVIZUMAB
     Indication: PREMATURE BABY
     Dosage: 40 MG
     Route: 030
     Dates: start: 20100115, end: 20100115

REACTIONS (2)
  - Respiratory syncytial virus infection [Recovered/Resolved]
  - Rotavirus infection [Recovered/Resolved]

NARRATIVE: CASE EVENT DATE: 20100209
